FAERS Safety Report 10280383 (Version 1)
Quarter: 2014Q3

REPORT INFORMATION
  Report Type: Spontaneous
  Country: US (occurrence: None)
  Receive Date: 20140701
  Receipt Date: 20140701
  Transmission Date: 20150326
  Serious: No
  Sender: FDA-Public Use
  Company Number: None

PATIENT
  Age: 21 Year
  Sex: Female
  Weight: 68.04 kg

DRUGS (2)
  1. CYMBALTA [Suspect]
     Active Substance: DULOXETINE HYDROCHLORIDE
     Indication: AFFECTIVE DISORDER
     Dosage: 60 MG, 1 PILL TAKEN BY MOUTH
     Route: 048
     Dates: start: 20131215, end: 20140630
  2. CYMBALTA [Suspect]
     Active Substance: DULOXETINE HYDROCHLORIDE
     Indication: DEPRESSION
     Dosage: 60 MG, 1 PILL TAKEN BY MOUTH
     Route: 048
     Dates: start: 20131215, end: 20140630

REACTIONS (4)
  - Product substitution issue [None]
  - Decreased activity [None]
  - Anhedonia [None]
  - Anxiety [None]

NARRATIVE: CASE EVENT DATE: 20140630
